FAERS Safety Report 24460239 (Version 1)
Quarter: 2024Q4

REPORT INFORMATION
  Report Type: Spontaneous
  Country: CA (occurrence: CA)
  Receive Date: 20241018
  Receipt Date: 20241018
  Transmission Date: 20250114
  Serious: No
  Sender: ROCHE
  Company Number: CA-ROCHE-3545475

PATIENT
  Age: 72 Year
  Sex: Female
  Weight: 53.0 kg

DRUGS (8)
  1. RITUXIMAB [Interacting]
     Active Substance: RITUXIMAB
     Indication: Immunosuppression
     Route: 042
  2. AMOXICILLIN [Interacting]
     Active Substance: AMOXICILLIN
     Indication: Dental operation
     Route: 048
  3. CALCIUM [Concomitant]
     Active Substance: CALCIUM
  4. CANDESARTAN [Concomitant]
     Active Substance: CANDESARTAN
  5. ELIQUIS [Concomitant]
     Active Substance: APIXABAN
  6. FUROSEMIDE [Concomitant]
     Active Substance: FUROSEMIDE
     Route: 065
  7. SYNTHROID [Concomitant]
     Active Substance: LEVOTHYROXINE SODIUM
  8. ERGOCALCIFEROL [Concomitant]
     Active Substance: ERGOCALCIFEROL

REACTIONS (3)
  - Drug interaction [Unknown]
  - Rash erythematous [Recovered/Resolved]
  - Rash pruritic [Recovered/Resolved]
